FAERS Safety Report 7961605-4 (Version None)
Quarter: 2011Q4

REPORT INFORMATION
  Report Type: 
  Country: None (occurrence: None)
  Receive Date: 20111207
  Receipt Date: 20111129
  Transmission Date: 20120403
  Serious: Yes (Hospitalization)
  Sender: FDA-Public Use
  Company Number: MX-SANOFI-AVENTIS-2011SA078739

PATIENT
  Age: 58 Year
  Sex: Male
  Weight: 86 kg

DRUGS (9)
  1. PLAVIX [Suspect]
     Indication: ANGIOPLASTY
     Route: 048
     Dates: start: 20080101, end: 20111105
  2. NPH INSULIN [Concomitant]
     Indication: TYPE 2 DIABETES MELLITUS
     Route: 058
     Dates: start: 19920101
  3. PLAVIX [Suspect]
     Route: 048
     Dates: start: 20080101, end: 20111105
  4. ASPIRIN [Concomitant]
     Indication: THROMBOSIS PROPHYLAXIS
     Route: 048
     Dates: start: 20080101, end: 20111105
  5. ASPIRIN [Concomitant]
     Route: 048
     Dates: start: 20111105
  6. PLAVIX [Suspect]
     Indication: THROMBOSIS PROPHYLAXIS
     Route: 048
     Dates: start: 20080101, end: 20111105
  7. PLAVIX [Suspect]
     Route: 048
     Dates: start: 20080101, end: 20111105
  8. METFORMIN HCL [Concomitant]
     Indication: TYPE 2 DIABETES MELLITUS
     Route: 048
     Dates: start: 19920101
  9. PLAVIX [Suspect]
     Indication: ACUTE MYOCARDIAL INFARCTION
     Route: 048
     Dates: start: 20080101, end: 20111105

REACTIONS (5)
  - DYSPNOEA [None]
  - PNEUMONIA BACTERIAL [None]
  - COUGH [None]
  - CYANOSIS [None]
  - PYREXIA [None]
